FAERS Safety Report 7430389-0 (Version None)
Quarter: 2011Q2

REPORT INFORMATION
  Report Type: 
  Country: None (occurrence: None)
  Receive Date: 20110421
  Receipt Date: 20100825
  Transmission Date: 20111010
  Serious: No
  Sender: FDA-Public Use
  Company Number: US-ASTRAZENECA-2010SE40102

PATIENT
  Sex: Female

DRUGS (3)
  1. TOPROL-XL [Suspect]
     Route: 048
  2. TOPROL-XL [Suspect]
     Indication: PALPITATIONS
     Route: 048
     Dates: start: 20050101
  3. TOPROL-XL [Suspect]
     Route: 048

REACTIONS (4)
  - DYSPNOEA [None]
  - HYPOTENSION [None]
  - FATIGUE [None]
  - FEELING ABNORMAL [None]
